FAERS Safety Report 6466320-4 (Version None)
Quarter: 2009Q4

REPORT INFORMATION
  Report Type: 
  Country: None (occurrence: None)
  Receive Date: 20091201
  Receipt Date: 20091201
  Transmission Date: 20100525
  Serious: Yes (Other)
  Sender: FDA-Public Use
  Company Number: None

PATIENT
  Age: 23 Year
  Sex: Female

DRUGS (1)
  1. TOPAMAX [Suspect]
     Indication: INSOMNIA
     Dosage: 25MG NIGHTLY PO
     Route: 048
     Dates: start: 20090815, end: 20090901

REACTIONS (1)
  - SUICIDAL IDEATION [None]
